FAERS Safety Report 9695028 (Version 1)
Quarter: 2013Q4

REPORT INFORMATION
  Report Type: Spontaneous
  Country: US (occurrence: US)
  Receive Date: 20131119
  Receipt Date: 20131119
  Transmission Date: 20140711
  Serious: No
  Sender: FDA-Public Use
  Company Number: US-009507513-1311USA007554

PATIENT
  Age: 39 Year
  Sex: Female
  Weight: 92.97 kg

DRUGS (3)
  1. NEXPLANON [Suspect]
     Indication: CONTRACEPTION
     Dosage: 3 YEAR IMPLANT (IMPLANT IN LEFT ARM)
     Route: 059
     Dates: start: 20131016
  2. SERTRALINE HYDROCHLORIDE [Concomitant]
     Dosage: UNK
  3. LISINOPRIL [Concomitant]
     Dosage: UNK

REACTIONS (1)
  - Menorrhagia [Unknown]
